FAERS Safety Report 17979075 (Version 1)
Quarter: 2020Q3

REPORT INFORMATION
  Report Type: Spontaneous
  Country: GR (occurrence: GR)
  Receive Date: 20200703
  Receipt Date: 20200703
  Transmission Date: 20201103
  Serious: Yes (Hospitalization, Other)
  Sender: FDA-Public Use
  Company Number: GR-PFIZER INC-2006045474

PATIENT
  Age: 48 Year
  Sex: Female

DRUGS (1)
  1. LIPITOR [Suspect]
     Active Substance: ATORVASTATIN CALCIUM
     Indication: HYPERCHOLESTEROLAEMIA
     Dosage: 10 MG, 1X/DAY
     Route: 048
     Dates: start: 2005, end: 2006

REACTIONS (5)
  - Weight decreased [Unknown]
  - Transaminases increased [Unknown]
  - Blood lactate dehydrogenase increased [Unknown]
  - Blood creatine phosphokinase increased [Unknown]
  - Fatigue [Unknown]

NARRATIVE: CASE EVENT DATE: 2005
